FAERS Safety Report 6572344-9 (Version None)
Quarter: 2010Q1

REPORT INFORMATION
  Report Type: 
  Country: None (occurrence: None)
  Receive Date: 20100205
  Receipt Date: 20100129
  Transmission Date: 20100710
  Serious: Yes (Death, Other)
  Sender: FDA-Public Use
  Company Number: CA-ELI_LILLY_AND_COMPANY-CA201002000127

PATIENT
  Age: 22 Year
  Sex: Female

DRUGS (2)
  1. XIGRIS [Suspect]
     Dosage: UNK, UNKNOWN
     Route: 065
  2. VASOPRESSIN [Concomitant]
     Dosage: UNK, UNKNOWN
     Route: 065

REACTIONS (2)
  - DEATH [None]
  - INTERNATIONAL NORMALISED RATIO INCREASED [None]
